FAERS Safety Report 5277027-3 (Version None)
Quarter: 2007Q1

REPORT INFORMATION
  Report Type: 
  Country: None (occurrence: None)
  Receive Date: 20070327
  Receipt Date: 20070202
  Transmission Date: 20070707
  Serious: No
  Sender: FDA-Public Use
  Company Number: US-BRISTOL-MYERS SQUIBB COMPANY-13667670

PATIENT
  Age: 59 Year
  Sex: Female
  Weight: 63 kg

DRUGS (13)
  1. ORENCIA [Suspect]
     Indication: RHEUMATOID ARTHRITIS
     Dates: start: 20061201
  2. LASIX [Concomitant]
  3. POTASSIUM ACETATE [Concomitant]
  4. COREG [Concomitant]
  5. SINGULAIR [Concomitant]
  6. ZANTAC [Concomitant]
  7. FOLIC ACID [Concomitant]
  8. ACCUPRIL [Concomitant]
  9. BELLASPAS [Concomitant]
  10. ARIMIDEX [Concomitant]
  11. SALAGEN [Concomitant]
  12. RESTASIS [Concomitant]
  13. SULFASALAZINE [Concomitant]

REACTIONS (3)
  - DIARRHOEA [None]
  - HEADACHE [None]
  - STOMACH DISCOMFORT [None]
